FAERS Safety Report 15911450 (Version 2)
Quarter: 2020Q1

REPORT INFORMATION
  Report Type: Spontaneous
  Country: US (occurrence: US)
  Receive Date: 20190204
  Receipt Date: 20200206
  Transmission Date: 20200409
  Serious: No
  Sender: FDA-Public Use
  Company Number: US-ABBVIE-18K-163-2410389-00

PATIENT
  Sex: Female

DRUGS (1)
  1. HUMIRA [Suspect]
     Active Substance: ADALIMUMAB
     Indication: PRODUCT USED FOR UNKNOWN INDICATION
     Route: 058

REACTIONS (10)
  - Back pain [Unknown]
  - Loss of personal independence in daily activities [Unknown]
  - Mental fatigue [Unknown]
  - Pain [Unknown]
  - Fatigue [Unknown]
  - General physical health deterioration [Unknown]
  - Back disorder [Unknown]
  - Stress [Unknown]
  - Poor quality sleep [Unknown]
  - Therapeutic product effect variable [Unknown]
